FAERS Safety Report 7428921-6 (Version None)
Quarter: 2011Q2

REPORT INFORMATION
  Report Type: 
  Country: None (occurrence: None)
  Receive Date: 20110415
  Receipt Date: 20110415
  Transmission Date: 20111010
  Serious: Yes (Other)
  Sender: FDA-Public Use
  Company Number: None

PATIENT
  Age: 39 Year
  Sex: Male
  Weight: 86.1834 kg

DRUGS (1)
  1. LUNESTA [Suspect]
     Indication: SLEEP DISORDER
     Dosage: 3MG NIGHTLY PO
     Route: 048
     Dates: start: 20100815, end: 20110401

REACTIONS (10)
  - DEPRESSION [None]
  - DRUG INEFFECTIVE [None]
  - BURNING SENSATION [None]
  - BURSITIS [None]
  - NAUSEA [None]
  - ARTHRALGIA [None]
  - ACTIVITIES OF DAILY LIVING IMPAIRED [None]
  - CONFUSIONAL STATE [None]
  - HEADACHE [None]
  - LIBIDO DECREASED [None]
